FAERS Safety Report 11520857 (Version 1)
Quarter: 2015Q3

REPORT INFORMATION
  Report Type: Spontaneous
  Country: US (occurrence: None)
  Receive Date: 20150917
  Receipt Date: 20150917
  Transmission Date: 20151125
  Serious: Yes (Disabling)
  Sender: FDA-Public Use
  Company Number: None

PATIENT
  Age: 64 Year
  Sex: Female
  Weight: 72.58 kg

DRUGS (5)
  1. ZANTAC [Concomitant]
  2. CYLEXA [Concomitant]
  3. LEVOFLOXACIN 750 MG [Suspect]
     Active Substance: LEVOFLOXACIN
     Dosage: 5 PILLS
     Route: 048
     Dates: start: 20150830, end: 20150904
  4. LIPITOR [Concomitant]
  5. LEVOTHROXINE SODIUM [Concomitant]

REACTIONS (1)
  - Arthropathy [None]

NARRATIVE: CASE EVENT DATE: 20150904
